FAERS Safety Report 4968680-X (Version None)
Quarter: 2006Q2

REPORT INFORMATION
  Report Type: 
  Country: None (occurrence: None)
  Receive Date: 20060411
  Receipt Date: 20060331
  Transmission Date: 20061013
  Serious: Yes (Death)
  Sender: FDA-Public Use
  Company Number: NL-JNJFOC-20050301706

PATIENT
  Sex: Female
  Weight: 65 kg

DRUGS (8)
  1. REMICADE [Suspect]
     Route: 042
  2. REMICADE [Suspect]
     Route: 042
  3. REMICADE [Suspect]
     Route: 042
  4. REMICADE [Suspect]
     Route: 042
  5. REMICADE [Suspect]
     Indication: MYELODYSPLASTIC SYNDROME
     Route: 042
  6. DEFEROXAMINE MESYLATE [Suspect]
     Indication: DRUG USE FOR UNKNOWN INDICATION
  7. COTRIM [Concomitant]
  8. COTRIM [Concomitant]

REACTIONS (6)
  - ENCEPHALITIS [None]
  - HEMIPARESIS [None]
  - MENINGITIS [None]
  - MUCORMYCOSIS [None]
  - MYOCARDIAL INFARCTION [None]
  - SEPTIC SHOCK [None]
